FAERS Safety Report 15034117 (Version 1)
Quarter: 2018Q2

REPORT INFORMATION
  Report Type: Spontaneous
  Country: US (occurrence: US)
  Receive Date: 20180620
  Receipt Date: 20180620
  Transmission Date: 20180711
  Serious: No
  Sender: FDA-Public Use
  Company Number: US-TEVA-2017-US-827079

PATIENT
  Sex: Male

DRUGS (1)
  1. LIDOCAINE TOPICAL 5% PATCH [Suspect]
     Active Substance: LIDOCAINE
     Indication: ARTHRALGIA
     Route: 061

REACTIONS (3)
  - Therapeutic response unexpected [Unknown]
  - Product use in unapproved indication [Unknown]
  - Drug prescribing error [Unknown]
